FAERS Safety Report 5383166-9 (Version None)
Quarter: 2007Q3

REPORT INFORMATION
  Report Type: 
  Country: None (occurrence: None)
  Receive Date: 20070705
  Receipt Date: 20070620
  Transmission Date: 20080115
  Serious: Yes (Other)
  Sender: FDA-Public Use
  Company Number: 2007AD000062

PATIENT
  Age: 61 Week
  Sex: Female
  Weight: 8.9812 kg

DRUGS (3)
  1. KEFLEX [Suspect]
     Indication: IMPETIGO
     Dosage: PO
     Route: 048
     Dates: start: 20070528, end: 20070604
  2. POTASSIUM PERMANGANATE [Concomitant]
  3. FUSIDIC ACID [Concomitant]

REACTIONS (2)
  - CONVULSION [None]
  - VOMITING [None]
